FAERS Safety Report 24785245 (Version 1)
Quarter: 2024Q4

REPORT INFORMATION
  Report Type: Spontaneous
  Country: US (occurrence: None)
  Receive Date: 20241227
  Receipt Date: 20241227
  Transmission Date: 20250115
  Serious: Yes (Hospitalization)
  Sender: Public
  Company Number: None

PATIENT
  Age: 57 Year
  Sex: Male

DRUGS (1)
  1. ELFABRIO [Suspect]
     Active Substance: PEGUNIGALSIDASE ALFA-IWXJ
     Indication: Fabry^s disease
     Dosage: 100 MG EVERY 2 WEEKS INTRAVENOUSLY?
     Route: 042
     Dates: start: 202403

REACTIONS (3)
  - Pneumonia [None]
  - Sepsis [None]
  - Clostridial infection [None]

NARRATIVE: CASE EVENT DATE: 20241215
